FAERS Safety Report 6128254-4 (Version None)
Quarter: 2009Q1

REPORT INFORMATION
  Report Type: 
  Country: None (occurrence: None)
  Receive Date: 20090319
  Receipt Date: 20090305
  Transmission Date: 20090719
  Serious: Yes (Death)
  Sender: FDA-Public Use
  Company Number: 02100-JPN-06-0310

PATIENT
  Age: 76 Year
  Sex: Female

DRUGS (21)
  1. PLETAL [Suspect]
     Indication: CEREBRAL INFARCTION
     Dosage: 100 MG, DAILY DOSE ORAL
     Route: 048
     Dates: start: 20060103, end: 20060116
  2. ASPIRIN [Concomitant]
  3. ITOPRIDE HYDROCHLORIDE (ITOPRIDE HYDROCHLORIDE) [Concomitant]
  4. DIMETHICONE/GUAIAZULENE (DIMETHICONE/GUAIAZULENE) [Concomitant]
  5. GINKGO BILOBA EXTRACT (GINKGO BILOBA EXTRACT) [Concomitant]
  6. BENEXATE HYDROCHLORIDE BETADEX (BENEXATE  HYDROCHLORIDE BETADEX) [Concomitant]
  7. ATORVASTATIN CALCIUM [Concomitant]
  8. ACETYL-L-CARNITINE HYDROCHLORIDE (ACETYL-L-CARNITINE HYDROCHLORIDE) [Concomitant]
  9. CHLORHEXIDINE GLUCONATE [Concomitant]
  10. AMMONIUM CHLORIDE/CHLORPHENIRAMINIE MALEATE/DEXTROMETHORPHAN/DL-METHYL [Concomitant]
  11. MOSAPRIDE CITRATE (MOSAPRIDE CITRATE) [Concomitant]
  12. PANCREATIN/BROMELAIN/DIMETHICONE (PANCREATIN/BROMELAIN/DIMETHICONE) [Concomitant]
  13. ACETAMINOPHEN [Concomitant]
  14. CILAZAPRIL (CILAZAPRIL) [Concomitant]
  15. ECABET SODIUM (ECABET SODIUM) [Concomitant]
  16. ASPIRIN (ENTERIC COATED) (ASPIRIN (ENTERIC COATED)) [Concomitant]
  17. AMLODIPINE BESYLATE (AMLODIPINE BESYLATE) [Concomitant]
  18. CALCIUM CARBONATE/CHOLECARCIFEROL (CALCIUM CARBONATE/CHOLECARCIFEROL) [Concomitant]
  19. CANDESARTAN CILEXETIL [Concomitant]
  20. INDAPAMIDE [Concomitant]
  21. CLONIXIN LYSINATE (CLONIXIN LYSINATE) [Concomitant]

REACTIONS (9)
  - ASCITES [None]
  - COLON CANCER METASTATIC [None]
  - DEHYDRATION [None]
  - GASTRIC ULCER [None]
  - HYPERKALAEMIA [None]
  - HYPERTENSION [None]
  - HYPONATRAEMIA [None]
  - HYPOTENSION [None]
  - PROCEDURAL PAIN [None]
